FAERS Safety Report 15571156 (Version 1)
Quarter: 2018Q4

REPORT INFORMATION
  Report Type: Spontaneous
  Country: US (occurrence: US)
  Receive Date: 20181031
  Receipt Date: 20181031
  Transmission Date: 20190205
  Serious: No
  Sender: FDA-Public Use
  Company Number: None

PATIENT
  Age: 69 Year
  Sex: Female
  Weight: 58.5 kg

DRUGS (3)
  1. MULTI VITAMIN SENIOR STRENGTH [Concomitant]
  2. PANTOPRAZOLE [Suspect]
     Active Substance: PANTOPRAZOLE
     Indication: GASTRITIS
     Dosage: ?          QUANTITY:1 TABLET(S);?
     Route: 048
     Dates: start: 20180926, end: 20181031
  3. CALCIUM WITH VITAMIN D-3 [Concomitant]

REACTIONS (6)
  - Abdominal pain upper [None]
  - Oropharyngeal pain [None]
  - Acne [None]
  - Diarrhoea [None]
  - Musculoskeletal pain [None]
  - Skin exfoliation [None]

NARRATIVE: CASE EVENT DATE: 20181031
